FAERS Safety Report 12973835 (Version 1)
Quarter: 2016Q4

REPORT INFORMATION
  Report Type: Report from Study
  Country: IT (occurrence: IT)
  Receive Date: 20161124
  Receipt Date: 20161124
  Transmission Date: 20170207
  Serious: Yes (Hospitalization, Other)
  Sender: FDA-Public Use
  Company Number: IT-BRISTOL-MYERS SQUIBB COMPANY-BMS-2016-098776

PATIENT
  Sex: Male

DRUGS (1)
  1. NIVOLUMAB [Suspect]
     Active Substance: NIVOLUMAB
     Indication: NON-SMALL CELL LUNG CANCER
     Dosage: 3 MG/KG, UNK
     Route: 042
     Dates: start: 20151105

REACTIONS (8)
  - Dyspnoea at rest [Unknown]
  - Vomiting [Unknown]
  - Cough [Unknown]
  - Generalised oedema [Unknown]
  - Sinus tachycardia [Unknown]
  - Pleural effusion [Unknown]
  - Dyspnoea [Unknown]
  - Localised oedema [Unknown]
